FAERS Safety Report 11038714 (Version 1)
Quarter: 2015Q2

REPORT INFORMATION
  Report Type: Spontaneous
  Country: JP (occurrence: JP)
  Receive Date: 20150416
  Receipt Date: 20150416
  Transmission Date: 20150821
  Serious: Yes (Hospitalization, Other)
  Sender: FDA-Public Use
  Company Number: JP-SHIRE-JP201503329

PATIENT
  Age: 80 Year
  Sex: Female

DRUGS (10)
  1. ADALAT [Suspect]
     Active Substance: NIFEDIPINE
     Indication: HYPERTENSION
     Dosage: 40 MG (IN THE ABSENCE OF DIALYSIS), UNKNOWN (PER DAY)
     Route: 048
     Dates: start: 20110324
  2. PLETAAL [Concomitant]
     Active Substance: CILOSTAZOL
     Indication: PROPHYLAXIS
     Dosage: 200 MG, UNKNOWN
     Route: 048
     Dates: start: 20120607
  3. ALFAROL [Concomitant]
     Active Substance: ALFACALCIDOL
     Indication: VITAMIN D DEFICIENCY
     Dosage: 0.25 ?G, UNKNOWN
     Route: 048
     Dates: start: 20110419
  4. FUROSEMIDE. [Concomitant]
     Active Substance: FUROSEMIDE
     Indication: HYPERTENSION
     Dosage: 80 MG, UNKNOWN
     Route: 048
     Dates: start: 20110324
  5. LIPITOR [Concomitant]
     Active Substance: ATORVASTATIN CALCIUM
     Indication: HYPERLIPIDAEMIA
     Dosage: 10 MG, UNKNOWN
     Route: 048
     Dates: start: 20120605
  6. FOSRENOL [Suspect]
     Active Substance: LANTHANUM CARBONATE
     Indication: HYPERPHOSPHATAEMIA
     Dosage: 2250 MG, UNKNOWN (PER DAY)
     Route: 048
     Dates: start: 20110526
  7. SHAKUYAKUKANZOTO [Concomitant]
     Active Substance: HERBALS
     Indication: MUSCLE SPASMS
     Dosage: 2.5 G, UNKNOWN
     Route: 048
     Dates: start: 20110623
  8. RENAGEL [Concomitant]
     Active Substance: SEVELAMER HYDROCHLORIDE
     Indication: HYPERPHOSPHATAEMIA
     Dosage: 3000 MG, UNKNOWN
     Route: 048
     Dates: start: 20120315
  9. METHYCOBAL [Concomitant]
     Active Substance: METHYLCOBALAMIN
     Indication: DIABETIC NEUROPATHY
     Dosage: 1000 ?G, UNKNOWN
     Route: 048
     Dates: start: 20110324
  10. EPADEL-S [Concomitant]
     Active Substance: ETHYL ICOSAPENTATE\ICOSAPENT
     Indication: HYPERLIPIDAEMIA
     Dosage: 1 DF, UNKNOWN
     Route: 048
     Dates: start: 20110913

REACTIONS (2)
  - Shunt stenosis [Recovered/Resolved]
  - Intestinal obstruction [Recovered/Resolved]

NARRATIVE: CASE EVENT DATE: 20141113
